FAERS Safety Report 8956253 (Version 1)
Quarter: 2012Q4

REPORT INFORMATION
  Report Type: 
  Country: US (occurrence: US)
  Receive Date: 20121210
  Receipt Date: 20121210
  Transmission Date: 20130627
  Serious: No
  Sender: FDA-Public Use
  Company Number: US-BAUSCH-2012BL000051

PATIENT
  Age: 83 Year
  Sex: Female

DRUGS (3)
  1. TOBRAMYCIN [Suspect]
     Indication: BLEPHARITIS
     Route: 047
     Dates: start: 20120102
  2. CITRACAL PLUS [Concomitant]
     Indication: OSTEOPOROSIS
  3. CRANBERRY [Concomitant]
     Indication: VITAMIN SUPPLEMENTATION

REACTIONS (1)
  - Dizziness [Recovered/Resolved]
